FAERS Safety Report 5811103-9 (Version None)
Quarter: 2008Q3

REPORT INFORMATION
  Report Type: 
  Country: None (occurrence: None)
  Receive Date: 20080710
  Receipt Date: 20080702
  Transmission Date: 20090109
  Serious: Yes (Death)
  Sender: FDA-Public Use
  Company Number: 2008-00865

PATIENT
  Sex: 0
  Weight: 82 kg

DRUGS (4)
  1. VELCADE [Suspect]
     Indication: MULTIPLE MYELOMA
     Dosage: 2.45 MG, INTRAVENOUS, 2.5 MG, INTRAVENOUS
     Route: 042
     Dates: start: 20071026, end: 20071105
  2. VELCADE [Suspect]
     Indication: MULTIPLE MYELOMA
     Dosage: 2.45 MG, INTRAVENOUS, 2.5 MG, INTRAVENOUS
     Route: 042
     Dates: start: 20071116, end: 20080218
  3. DEXAMETHASONE [Concomitant]
  4. PAMIDRONATE DISODIUM [Concomitant]

REACTIONS (1)
  - HAEMORRHAGE INTRACRANIAL [None]
